FAERS Safety Report 4886315-1 (Version None)
Quarter: 2006Q1

REPORT INFORMATION
  Report Type: 
  Country: None (occurrence: None)
  Receive Date: 20060120
  Receipt Date: 20050406
  Transmission Date: 20060701
  Serious: Yes (Hospitalization, Other)
  Sender: FDA-Public Use
  Company Number: US-MERCK-0504USA01023

PATIENT
  Age: 55 Year
  Sex: Female
  Weight: 92 kg

DRUGS (29)
  1. VIOXX [Suspect]
     Indication: ARTHRITIS
     Route: 048
     Dates: start: 19990101, end: 20030101
  2. TAGAMET [Concomitant]
     Route: 065
  3. VASOTEC [Concomitant]
     Route: 065
  4. GLYBURIDE [Concomitant]
     Route: 065
  5. TYLENOL W/ CODEINE [Concomitant]
     Route: 065
  6. NITROQUICK [Concomitant]
     Route: 065
  7. VALIUM [Concomitant]
     Route: 065
  8. THEOPHYLLINE [Concomitant]
     Route: 065
  9. CIPRO [Concomitant]
     Route: 065
  10. INDERAL [Concomitant]
     Route: 065
  11. IMITREX [Concomitant]
     Route: 065
  12. ALBUTEROL [Concomitant]
     Route: 065
  13. COMPAZINE [Concomitant]
     Route: 065
  14. ASPIRIN [Concomitant]
     Route: 065
  15. RIOPAN [Concomitant]
     Route: 065
  16. PREMARIN [Concomitant]
     Route: 065
  17. XANAX [Concomitant]
     Route: 065
  18. FLURAZEPAM [Concomitant]
     Route: 065
  19. LEVAQUIN [Concomitant]
     Route: 065
  20. AUGMENTIN '500' [Concomitant]
     Route: 065
  21. AMOXICILLIN [Concomitant]
     Route: 065
  22. ULTRAM [Concomitant]
     Route: 065
  23. MACROBID [Concomitant]
     Route: 065
  24. PEPCID [Concomitant]
     Route: 065
  25. CLINDAMYCIN [Concomitant]
     Route: 065
  26. NORVASC [Concomitant]
     Route: 065
  27. TEMAZEPAM [Concomitant]
     Route: 065
  28. GLUCOPHAGE [Concomitant]
     Route: 065
  29. SEREVENT [Concomitant]
     Route: 065

REACTIONS (18)
  - BACK INJURY [None]
  - BREAST DISORDER [None]
  - CEREBROVASCULAR ACCIDENT [None]
  - CHEST PAIN [None]
  - CONTUSION [None]
  - CORONARY ARTERY DISEASE [None]
  - CYSTITIS NONINFECTIVE [None]
  - CYSTOCELE [None]
  - DRUG HYPERSENSITIVITY [None]
  - DYSPNOEA [None]
  - EAR INFECTION [None]
  - GROIN PAIN [None]
  - HEART RATE INCREASED [None]
  - MYOCARDIAL INFARCTION [None]
  - NECK INJURY [None]
  - ROAD TRAFFIC ACCIDENT [None]
  - SIALOADENITIS [None]
  - URETHRAL STENOSIS [None]
